FAERS Safety Report 26097690 (Version 1)
Quarter: 2025Q4

REPORT INFORMATION
  Report Type: Spontaneous
  Country: CN (occurrence: CN)
  Receive Date: 20251127
  Receipt Date: 20251127
  Transmission Date: 20260117
  Serious: Yes (Life-Threatening, Hospitalization)
  Sender: ROCHE
  Company Number: CN-ROCHE-10000445410

PATIENT
  Age: 11 Year
  Sex: Male

DRUGS (1)
  1. XOFLUZA [Suspect]
     Active Substance: BALOXAVIR MARBOXIL
     Indication: Influenza
     Dosage: 2 PILL
     Route: 048
     Dates: start: 20251119

REACTIONS (3)
  - Vomiting [Unknown]
  - Diarrhoea [Unknown]
  - Encephalitis toxic [Unknown]

NARRATIVE: CASE EVENT DATE: 20251119
